FAERS Safety Report 15907726 (Version 1)
Quarter: 2019Q1

REPORT INFORMATION
  Report Type: Spontaneous
  Country: US (occurrence: US)
  Receive Date: 20190204
  Receipt Date: 20190204
  Transmission Date: 20190417
  Serious: Yes (Hospitalization)
  Sender: FDA-Public Use
  Company Number: None

PATIENT
  Age: 29 Month
  Sex: Male

DRUGS (7)
  1. SODIUM CHLORIDE 3% NEBS [Concomitant]
  2. KALYDECO [Suspect]
     Active Substance: IVACAFTOR
     Indication: CYSTIC FIBROSIS
     Route: 048
  3. ALBUTEROL INHALER [Concomitant]
     Active Substance: ALBUTEROL
  4. ALBUTEROL 0.083% NEBS [Concomitant]
  5. RANITIDINE 15MG/ML [Concomitant]
  6. CREON 6000 UNITS [Concomitant]
  7. TYLENOL 160MG/5ML [Concomitant]

REACTIONS (1)
  - Infection [None]

NARRATIVE: CASE EVENT DATE: 20190204
